FAERS Safety Report 14648838 (Version 2)
Quarter: 2018Q1

REPORT INFORMATION
  Report Type: Spontaneous
  Country: GB (occurrence: GB)
  Receive Date: 20180316
  Receipt Date: 20180326
  Transmission Date: 20180509
  Serious: Yes (Other)
  Sender: FDA-Public Use
  Company Number: GB-PFIZER INC-2018101919

PATIENT
  Sex: Male

DRUGS (1)
  1. METHYLPREDNISOLONE SODIUM SUCCINATE. [Suspect]
     Active Substance: METHYLPREDNISOLONE SODIUM SUCCINATE
     Indication: MULTIPLE SCLEROSIS
     Dosage: 3000 MG, UNK

REACTIONS (10)
  - Vertigo [Not Recovered/Not Resolved]
  - Fungal infection [Unknown]
  - Malaise [Unknown]
  - Depression [Unknown]
  - Eye haemorrhage [Unknown]
  - Medication error [Unknown]
  - Infection [Not Recovered/Not Resolved]
  - Anxiety [Unknown]
  - Epistaxis [Unknown]
  - Condition aggravated [Unknown]
